FAERS Safety Report 10413918 (Version 1)
Quarter: 2014Q3

REPORT INFORMATION
  Report Type: Spontaneous
  Country: GB (occurrence: None)
  Receive Date: 20140825
  Receipt Date: 20140825
  Transmission Date: 20150326
  Serious: Yes (Hospitalization)
  Sender: FDA-Public Use
  Company Number: AUR-APL-2014-08882

PATIENT
  Age: 30 Year
  Sex: Female
  Weight: 59.6 kg

DRUGS (13)
  1. TRIMETHOPRIM (TRIMETHOPRIM) [Concomitant]
     Active Substance: TRIMETHOPRIM
  2. CHLORPHENAMINE (CHLORPHENAMINE) [Concomitant]
  3. IBUPROFEN (IBUPROFEN) [Concomitant]
     Active Substance: IBUPROFEN
  4. MACROGOL (MACROGOL) [Concomitant]
  5. SALBUTAMOL (SALBUTAMOL) [Concomitant]
     Active Substance: ALBUTEROL
  6. ERYTHROMYCIN (ERYTHROMYCIN) [Concomitant]
     Active Substance: ERYTHROMYCIN
  7. LOPERAMIDE (LOPERAMIDE) [Concomitant]
     Active Substance: LOPERAMIDE
  8. MEBEVERINE (MEBEVERINE) [Concomitant]
     Active Substance: MEBEVERINE
  9. NAPROXEN (NAPROXEN) [Concomitant]
     Active Substance: NAPROXEN
  10. TRAMACET (PARACETAMOL, TRAMADOL HYDROCHLORIDE) [Concomitant]
  11. CITALOPRAM [Suspect]
     Active Substance: CITALOPRAM HYDROBROMIDE
     Indication: DEPRESSION
     Route: 048
     Dates: start: 20140306, end: 20140513
  12. PRUCALOPRIDE [Suspect]
     Active Substance: PRUCALOPRIDE
     Indication: IRRITABLE BOWEL SYNDROME
     Route: 048
     Dates: start: 201307, end: 20140513
  13. METRONIDAZOLE (METRONIDAZOLE) [Concomitant]
     Active Substance: METRONIDAZOLE

REACTIONS (5)
  - Erythema nodosum [None]
  - Electrocardiogram QT prolonged [None]
  - Condition aggravated [None]
  - Malaise [None]
  - Off label use [None]
